FAERS Safety Report 8494489-9 (Version None)
Quarter: 2012Q3

REPORT INFORMATION
  Report Type: 
  Country: None (occurrence: None)
  Receive Date: 20120709
  Receipt Date: 20120626
  Transmission Date: 20120928
  Serious: Yes (Hospitalization)
  Sender: FDA-Public Use
  Company Number: US-JNJFOC-20120613573

PATIENT
  Sex: Male
  Weight: 76.2 kg

DRUGS (6)
  1. DURAGESIC-100 [Suspect]
     Route: 062
  2. DURAGESIC-100 [Suspect]
     Indication: BACK PAIN
     Route: 062
     Dates: start: 20000101
  3. DURAGESIC-100 [Suspect]
     Route: 062
  4. DURAGESIC-100 [Suspect]
     Route: 062
  5. DURAGESIC-100 [Suspect]
     Route: 062
     Dates: start: 20080101, end: 20081001
  6. DURAGESIC-100 [Suspect]
     Route: 062
     Dates: start: 20070101, end: 20080101

REACTIONS (4)
  - PRODUCT QUALITY ISSUE [None]
  - ARTHROPATHY [None]
  - INTERVERTEBRAL DISC OPERATION [None]
  - PAIN [None]
